FAERS Safety Report 9644250 (Version 1)
Quarter: 2013Q4

REPORT INFORMATION
  Report Type: Spontaneous
  Country: US (occurrence: US)
  Receive Date: 20131024
  Receipt Date: 20131024
  Transmission Date: 20140711
  Serious: Yes (Other)
  Sender: FDA-Public Use
  Company Number: US-JNJFOC-20131010721

PATIENT
  Age: 66 Year
  Sex: Female

DRUGS (2)
  1. TYLENOL EXTRA STRENGTH [Suspect]
     Indication: HEADACHE
     Dosage: AS NEEDED
     Route: 048
  2. TYLENOL EXTRA STRENGTH [Suspect]
     Indication: ARTHRITIS
     Dosage: AS NEEDED
     Route: 048

REACTIONS (2)
  - Hepatic mass [Not Recovered/Not Resolved]
  - Cold sweat [Unknown]
